FAERS Safety Report 8145500-6 (Version None)
Quarter: 2012Q1

REPORT INFORMATION
  Report Type: 
  Country: None (occurrence: None)
  Receive Date: 20120217
  Receipt Date: 20120206
  Transmission Date: 20120608
  Serious: Yes (Death, Hospitalization)
  Sender: FDA-Public Use
  Company Number: JP-COVIDIEN/TYCO HEALTHCARE/MALLINCKRODT-T201200567

PATIENT
  Sex: Female
  Weight: 40.7 kg

DRUGS (17)
  1. METHADONE HCL [Suspect]
     Dosage: 30 MG, QD
     Route: 048
     Dates: start: 20110827, end: 20110901
  2. METHADONE HCL [Suspect]
     Dosage: 30 MG, QD
     Route: 048
     Dates: start: 20110909, end: 20111021
  3. METHADONE HCL [Suspect]
     Dosage: 40 MG, QD
     Route: 048
     Dates: start: 20111022, end: 20120119
  4. METHADONE HCL [Suspect]
     Dosage: 50 MG, QD
     Route: 048
     Dates: start: 20120120, end: 20120201
  5. LYRICA [Concomitant]
     Dosage: 75 MG, BID
     Dates: start: 20111021, end: 20120201
  6. MUCOSTA [Concomitant]
     Dosage: 300 MG, TID
     Dates: end: 20120206
  7. RINDERON                           /00008501/ [Concomitant]
     Dosage: 2 MG, BID
  8. MAGMITT [Concomitant]
     Indication: CONSTIPATION
     Dosage: 330 - 660 MG, PRN
     Dates: end: 20120201
  9. LANSOPRAZOLE [Concomitant]
     Dosage: 15 MG, QD
     Dates: start: 20110825
  10. TRYPTANOL                          /00002202/ [Concomitant]
     Dosage: 25 MG, QD
     Dates: start: 20110916, end: 20120201
  11. METHADONE HCL [Suspect]
     Dosage: 20 MG, QD
     Route: 048
     Dates: start: 20110823, end: 20110826
  12. METHADONE HCL [Suspect]
     Dosage: 40 MG, QD
     Route: 048
     Dates: start: 20110902, end: 20110908
  13. METHADONE HCL [Suspect]
     Indication: CANCER PAIN
     Dosage: 15 MG, QD
     Route: 048
     Dates: start: 20110819, end: 20110822
  14. ACETAMINOPHEN [Concomitant]
     Dosage: 2400 MG, QID
     Dates: start: 20110909, end: 20120201
  15. PURSENNID                          /00571902/ [Concomitant]
     Indication: CONSTIPATION
     Dosage: 12 MG, PRN
     Dates: start: 20120106, end: 20120201
  16. LOXONIN [Concomitant]
     Dosage: 180 MG, TID
     Dates: end: 20120201
  17. OXYCODONE HCL [Concomitant]
     Indication: CANCER PAIN
     Dosage: 30 MG, PRN

REACTIONS (2)
  - GENERAL PHYSICAL HEALTH DETERIORATION [None]
  - PAIN [None]
